FAERS Safety Report 7980429 (Version 4)
Quarter: 2013Q3

REPORT INFORMATION
  Report Type: Spontaneous
  Country: BR (occurrence: BR)
  Receive Date: 20110608
  Receipt Date: 20130822
  Transmission Date: 20140515
  Serious: Yes (Other)
  Sender: FDA-Public Use
  Company Number: PHHY2011BR42199

PATIENT
  Age: 33 Year
  Sex: Male

DRUGS (6)
  1. RITALINA [Suspect]
     Indication: ATTENTION DEFICIT/HYPERACTIVITY DISORDER
     Dosage: 6 TO 7 TABLET) REACHED TO DAILY OF 70 MG
  2. RITALINA [Suspect]
     Dosage: 70 MG, DAILY
     Route: 048
  3. RITALINA [Suspect]
     Dosage: 130 MG, ONE DAY
  4. RITALIN LA [Suspect]
     Indication: ATTENTION DEFICIT/HYPERACTIVITY DISORDER
     Dosage: 1 DF(X40 MG) DAILY
  5. RITALIN LA [Suspect]
     Dosage: 3 DF  (X40 MG) DAILY
  6. RIVOTRIL [Concomitant]
     Dosage: 1 MG, UNK
     Dates: start: 2005

REACTIONS (19)
  - Gastritis [Unknown]
  - Gastric ulcer [Unknown]
  - Drug dependence [Unknown]
  - Depression [Unknown]
  - Drug withdrawal syndrome [Unknown]
  - Overdose [Unknown]
  - Tremor [Unknown]
  - Abdominal pain upper [Unknown]
  - Hepatic enzyme abnormal [Unknown]
  - Vision blurred [Unknown]
  - Hepatic steatosis [Unknown]
  - Disturbance in attention [Unknown]
  - Confusional state [Unknown]
  - Wrong technique in drug usage process [Unknown]
  - Irritability [Unknown]
  - Blood pressure increased [Unknown]
  - Drug effect decreased [Unknown]
  - Drug tolerance [Unknown]
  - Incorrect route of drug administration [Unknown]
